FAERS Safety Report 20318873 (Version 2)
Quarter: 2024Q1

REPORT INFORMATION
  Report Type: Other
  Country: CN (occurrence: None)
  Receive Date: 20220110
  Receipt Date: 20240223
  Transmission Date: 20240409
  Serious: Yes (Other)
  Sender: FDA-Public Use
  Company Number: CN-ROCHE-2996709

PATIENT

DRUGS (3)
  1. RITUXIMAB [Suspect]
     Active Substance: RITUXIMAB
     Indication: Central nervous system lymphoma
     Route: 042
  2. LENALIDOMIDE [Suspect]
     Active Substance: LENALIDOMIDE
     Indication: Central nervous system lymphoma
     Route: 048
  3. METHOTREXATE [Suspect]
     Active Substance: METHOTREXATE
     Indication: Central nervous system lymphoma
     Dosage: 3.5 G/M2 ON DAY 1
     Route: 042

REACTIONS (18)
  - Neutropenia [Unknown]
  - Alanine aminotransferase increased [Unknown]
  - Infection [Unknown]
  - Thrombocytopenia [Unknown]
  - Acute kidney injury [Unknown]
  - Leukopenia [Unknown]
  - Aspartate aminotransferase increased [Unknown]
  - Renal failure [Unknown]
  - Anaemia [Unknown]
  - Constipation [Unknown]
  - Hepatic function abnormal [Unknown]
  - Rash [Unknown]
  - Deep vein thrombosis [Unknown]
  - Sinus bradycardia [Unknown]
  - Hypoaesthesia [Unknown]
  - Hypotension [Unknown]
  - Pyrexia [Unknown]
  - Urinary tract infection [Unknown]
